FAERS Safety Report 25388944 (Version 1)
Quarter: 2025Q2

REPORT INFORMATION
  Report Type: Spontaneous
  Country: US (occurrence: US)
  Receive Date: 20250603
  Receipt Date: 20250603
  Transmission Date: 20250717
  Serious: Yes (Other)
  Sender: ACCORD
  Company Number: US-Accord-487342

PATIENT
  Age: 70 Year
  Sex: Female
  Weight: 78.6 kg

DRUGS (2)
  1. AZACITIDINE [Suspect]
     Active Substance: AZACITIDINE
     Indication: Acute myeloid leukaemia
  2. VENETOCLAX [Concomitant]
     Active Substance: VENETOCLAX
     Indication: Acute myeloid leukaemia
     Route: 048

REACTIONS (4)
  - Drug-induced liver injury [Recovering/Resolving]
  - Hepatic hypoperfusion [Unknown]
  - Arteriospasm coronary [Unknown]
  - Colitis ischaemic [Unknown]
